FAERS Safety Report 5165656-7 (Version None)
Quarter: 2006Q4

REPORT INFORMATION
  Report Type: 
  Country: None (occurrence: None)
  Receive Date: 20061128
  Receipt Date: 20061116
  Transmission Date: 20070319
  Serious: Yes (Hospitalization)
  Sender: FDA-Public Use
  Company Number: FRWYE552216NOV06

PATIENT
  Age: 83 Year
  Sex: Female

DRUGS (10)
  1. EFFEXOR XR [Suspect]
     Indication: DEPRESSION
     Dosage: 37.5 MG 1X PER 1 DAY
     Route: 048
     Dates: start: 20060101, end: 20060901
  2. DITROPAN [Concomitant]
  3. DIOSMIN             (DIOSMIN) [Concomitant]
  4. TETRAZEPAM                         (TETRAZEPAM) [Concomitant]
  5. CACIT                     (CALCIUM CARBONATE/CITRIC ACID) [Concomitant]
  6. VITAMIN D [Concomitant]
  7. EVISTA [Concomitant]
  8. AVLOCARDYL (PROPRANOLOL HYDROCHLORIDE) [Concomitant]
  9. TRAMADOL HCL [Concomitant]
  10. MUCOMYST [Concomitant]

REACTIONS (14)
  - ABULIA [None]
  - AKINESIA [None]
  - ANOREXIA [None]
  - APHASIA [None]
  - ASTHENIA [None]
  - BLOOD PRESSURE INCREASED [None]
  - CONDITION AGGRAVATED [None]
  - DEPRESSION [None]
  - FALL [None]
  - GENERAL PHYSICAL HEALTH DETERIORATION [None]
  - HYPOKALAEMIA [None]
  - HYPONATRAEMIA [None]
  - PARKINSONIAN REST TREMOR [None]
  - PSYCHOMOTOR RETARDATION [None]
